FAERS Safety Report 16094954 (Version 1)
Quarter: 2019Q1

REPORT INFORMATION
  Report Type: Spontaneous
  Country: US (occurrence: US)
  Receive Date: 20190320
  Receipt Date: 20190320
  Transmission Date: 20190418
  Serious: No
  Sender: FDA-Public Use
  Company Number: US-PFIZER INC-2018411204

PATIENT
  Age: 47 Year
  Sex: Female

DRUGS (2)
  1. XELJANZ XR [Suspect]
     Active Substance: TOFACITINIB CITRATE
     Dosage: 11 MG, UNK
  2. VALACYCLOVIR [VALACICLOVIR HYDROCHLORIDE] [Concomitant]
     Dosage: UNK

REACTIONS (2)
  - Intentional dose omission [Unknown]
  - Malaise [Unknown]
